FAERS Safety Report 5122454-8 (Version None)
Quarter: 2006Q4

REPORT INFORMATION
  Report Type: 
  Country: None (occurrence: None)
  Receive Date: 20061004
  Receipt Date: 20060915
  Transmission Date: 20070319
  Serious: Yes (Death)
  Sender: FDA-Public Use
  Company Number: 229972

PATIENT
  Age: 43 Year
  Sex: Male
  Weight: 63.5 kg

DRUGS (3)
  1. AVASTIN [Suspect]
     Indication: LIP AND/OR ORAL CAVITY CANCER
     Dosage: 10 MG/KG, Q2W, INTRAVENOUS
     Route: 042
     Dates: start: 20040919
  2. FLUOROURACIL [Concomitant]
  3. HYDROXYUREA [Concomitant]

REACTIONS (1)
  - VASCULAR RUPTURE [None]
